FAERS Safety Report 15634472 (Version 2)
Quarter: 2018Q4

REPORT INFORMATION
  Report Type: Report from Study
  Country: US (occurrence: US)
  Receive Date: 20181119
  Receipt Date: 20181128
  Transmission Date: 20190205
  Serious: Yes (Death, Hospitalization, Other)
  Sender: FDA-Public Use
  Company Number: PHHY2018US153358

PATIENT
  Age: 64 Year
  Sex: Female
  Weight: 36.3 kg

DRUGS (40)
  1. PEPCID [Concomitant]
     Active Substance: FAMOTIDINE
     Indication: HYPERTENSION
     Dosage: 20 MG, QD
     Route: 048
     Dates: start: 20180601
  2. LOPRESSOR [Concomitant]
     Active Substance: METOPROLOL TARTRATE
     Indication: HYPERTENSION
     Dosage: 50 MG, BID
     Route: 048
     Dates: start: 20180601
  3. HYDROCORTISONE. [Concomitant]
     Active Substance: HYDROCORTISONE
     Indication: IRRITABILITY
  4. DRONABINOL. [Concomitant]
     Active Substance: DRONABINOL
     Indication: PRODUCT USED FOR UNKNOWN INDICATION
     Dosage: 1 DF, BID
     Route: 065
  5. AMIKIN [Concomitant]
     Active Substance: AMIKACIN SULFATE
     Indication: OSTEOMYELITIS
     Dosage: 600 MG, TID
     Route: 042
     Dates: start: 20180917
  6. PLAVIX [Concomitant]
     Active Substance: CLOPIDOGREL BISULFATE
     Indication: PLATELET DISORDER
     Dosage: 75 MG, QD
     Route: 048
     Dates: start: 20180601
  7. DEBROX [Concomitant]
     Active Substance: CARBAMIDE PEROXIDE
     Indication: EAR DISORDER
     Dosage: 5 DF, BID
     Route: 001
  8. ARTIFICIAL TEARS [Concomitant]
     Active Substance: GLYCERIN\HYPROMELLOSES\POLYETHYLENE GLYCOL 400
     Indication: EAR DISORDER
     Dosage: 1 DF, QHS
     Route: 065
  9. COZAAR [Concomitant]
     Active Substance: LOSARTAN POTASSIUM
     Indication: EAR DISORDER
     Dosage: 1 DF, QD
     Route: 048
  10. LOVENOX [Concomitant]
     Active Substance: ENOXAPARIN SODIUM
     Indication: THROMBOSIS
     Dosage: 0.3 ML, QD (UNDER SKIN DAILY)
     Route: 058
     Dates: start: 20180914
  11. GLUCOTROL [Concomitant]
     Active Substance: GLIPIZIDE
     Indication: DIABETES MELLITUS
     Dosage: 0.5 DF (2.5 MG), QD
     Route: 048
     Dates: start: 20180601
  12. DUONEB [Concomitant]
     Active Substance: ALBUTEROL SULFATE\IPRATROPIUM BROMIDE
     Indication: ASTHMA
     Dosage: 3 ML, QID (NEBULIZER) (0.5-2.5 MG/3 ML)
     Route: 065
     Dates: start: 20180601
  13. LAMPRENE [Suspect]
     Active Substance: CLOFAZIMINE
     Indication: MYCOBACTERIUM AVIUM COMPLEX INFECTION
     Dosage: 100 MG, QD
     Route: 048
     Dates: start: 20181024
  14. LIPITOR [Concomitant]
     Active Substance: ATORVASTATIN CALCIUM
     Indication: HYPERCHOLESTEROLAEMIA
     Dosage: 20 MG, QD
     Route: 048
     Dates: start: 20180601
  15. LEXAPRO [Concomitant]
     Active Substance: ESCITALOPRAM OXALATE
     Indication: DEPRESSION
     Dosage: 10 MG, QD
     Route: 048
     Dates: start: 20180601
  16. LOSARTAN. [Concomitant]
     Active Substance: LOSARTAN
     Indication: HYPERTENSION
     Dosage: 25 MG, QD
     Route: 048
     Dates: start: 20180601
  17. DRISDOL [Concomitant]
     Active Substance: ERGOCALCIFEROL
     Indication: VITAMIN D DEFICIENCY
     Dosage: 6 ML, QW
     Route: 048
     Dates: start: 20180629
  18. ACETAMINOPHEN AND CODEINE [Concomitant]
     Active Substance: ACETAMINOPHEN\CODEINE PHOSPHATE
     Indication: PAIN
     Dosage: 1 DF, Q4H AND AS NEEDED
     Route: 048
  19. MUCOMYST [Concomitant]
     Active Substance: ACETYLCYSTEINE
     Indication: PAIN
     Dosage: 2 ML, Q4H
     Route: 055
  20. HUMULIN NOS [Concomitant]
     Active Substance: INSULIN HUMAN
     Indication: PRODUCT USED FOR UNKNOWN INDICATION
     Dosage: 0.02-0.1 ML, QD (MORNING)
     Route: 058
  21. ASPIRIN. [Concomitant]
     Active Substance: ASPIRIN
     Indication: PROPHYLAXIS
     Dosage: 81 MG, QD
     Route: 048
     Dates: start: 20180601
  22. BUDESONIDE. [Concomitant]
     Active Substance: BUDESONIDE
     Indication: ASTHMA
     Dosage: 0.5 MG, BID
     Route: 055
     Dates: start: 20180601
  23. ULTRAM [Concomitant]
     Active Substance: TRAMADOL HYDROCHLORIDE
     Indication: PAIN
     Dosage: 50 MG, BID
     Route: 048
     Dates: start: 20180601
  24. HYDROCORTISONE. [Concomitant]
     Active Substance: HYDROCORTISONE
     Indication: INFLAMMATION
     Dosage: 1 DF, BID
     Route: 061
     Dates: start: 20180601
  25. ISOPTO TEARS [Concomitant]
     Active Substance: HYPROMELLOSE 2910 (4000 MPA.S)
     Indication: EYE DISORDER
     Dosage: 1 DF, Q4H
     Route: 047
  26. MARINOL [Concomitant]
     Active Substance: DRONABINOL
     Indication: PRODUCT USED FOR UNKNOWN INDICATION
     Dosage: 1 DF, BID (BEFORE MEAL)
     Route: 048
     Dates: start: 20181024
  27. NEURONTIN [Concomitant]
     Active Substance: GABAPENTIN
     Indication: NEURALGIA
     Dosage: 12 ML (250 MG/5 ML), BID (600 MG TOTAL)
     Route: 048
     Dates: start: 20180601
  28. TYLENOL [Concomitant]
     Active Substance: ACETAMINOPHEN
     Indication: PAIN
     Dosage: 20.3 ML, Q6H (TOTAL 650 MG) (AS NEEDED)
     Route: 065
  29. APRESOLINE HYDROCHLORIDE [Concomitant]
     Active Substance: HYDRALAZINE HYDROCHLORIDE
     Indication: PRODUCT USED FOR UNKNOWN INDICATION
     Dosage: 1 DF, Q8H
     Route: 058
  30. BACITRACIN. [Concomitant]
     Active Substance: BACITRACIN
     Indication: BACTERIAL INFECTION
     Dosage: 2 DF, QD
     Route: 061
     Dates: start: 20180601
  31. CELEXA [Concomitant]
     Active Substance: CITALOPRAM HYDROBROMIDE
     Indication: PRODUCT USED FOR UNKNOWN INDICATION
     Dosage: 0.5 DF, QD
     Route: 048
  32. DILAUDID [Concomitant]
     Active Substance: HYDROMORPHONE HYDROCHLORIDE
     Indication: PAIN
     Dosage: 0.3 ML, Q4H (0.3 MG TOTAL)
     Route: 042
  33. COZAAR [Concomitant]
     Active Substance: LOSARTAN POTASSIUM
     Indication: PRODUCT USED FOR UNKNOWN INDICATION
     Dosage: 1 DF, QD
     Route: 048
  34. ZOFRAN [Concomitant]
     Active Substance: ONDANSETRON HYDROCHLORIDE
     Indication: VOMITING
     Dosage: 2 ML, Q6H (TOTAL 4 MG TOTAL)
     Route: 042
     Dates: start: 20180601
  35. PULMICORT TURBUHALER [Concomitant]
     Active Substance: BUDESONIDE
     Indication: CANDIDA INFECTION
     Dosage: 0.5 MG, BID (RINSE WITH MOUTH)
     Route: 048
  36. NORCO [Concomitant]
     Active Substance: ACETAMINOPHEN\HYDROCODONE BITARTRATE
     Indication: PAIN
     Dosage: 1 DF (5-325 MG), Q6H
     Route: 048
  37. IMODIUM [Concomitant]
     Active Substance: LOPERAMIDE HYDROCHLORIDE
     Indication: DIARRHOEA
     Dosage: 10 ML, Q4H (2 MG TOTAL)
     Route: 048
  38. SODIUM CHLORIDE. [Concomitant]
     Active Substance: SODIUM CHLORIDE
     Indication: PRODUCT USED FOR UNKNOWN INDICATION
     Dosage: 25 ML, UNK
     Route: 042
  39. SODIUM CHLORIDE. [Concomitant]
     Active Substance: SODIUM CHLORIDE
     Dosage: 3 ML, UNK
     Route: 042
  40. AMBIEN [Concomitant]
     Active Substance: ZOLPIDEM TARTRATE
     Indication: PRODUCT USED FOR UNKNOWN INDICATION
     Dosage: 2 DF, QHS (AS NEEDED)
     Route: 048

REACTIONS (11)
  - Infection [Unknown]
  - Electrolyte imbalance [Unknown]
  - Cardiac arrest [Fatal]
  - Acidosis [Unknown]
  - Blood glucose increased [Unknown]
  - Myocardial infarction [Unknown]
  - Sepsis [Unknown]
  - Pulmonary embolism [Unknown]
  - Hypoglycaemia [Unknown]
  - Pericardial effusion [Unknown]
  - Necrotising fasciitis [Unknown]

NARRATIVE: CASE EVENT DATE: 20181104
